FAERS Safety Report 10896784 (Version 1)
Quarter: 2015Q1

REPORT INFORMATION
  Report Type: Spontaneous
  Country: US (occurrence: US)
  Receive Date: 20150309
  Receipt Date: 20150309
  Transmission Date: 20150721
  Serious: Yes (Death)
  Sender: FDA-Public Use
  Company Number: US-BANPHARM-20153669

PATIENT
  Age: 78 Year
  Sex: Female

DRUGS (5)
  1. TEMAZEPAM. [Suspect]
     Active Substance: TEMAZEPAM
  2. MECLIZINE [Suspect]
     Active Substance: MECLIZINE\MECLIZINE HYDROCHLORIDE
  3. PREGABALIN. [Suspect]
     Active Substance: PREGABALIN
  4. DIPHENHYDRAMINE UNKNOWN PRODUCT [Suspect]
     Active Substance: DIPHENHYDRAMINE
  5. BENZODIAZEPINE [Suspect]
     Active Substance: BENZODIAZEPINE

REACTIONS (2)
  - Completed suicide [Fatal]
  - Exposure via ingestion [None]
